FAERS Safety Report 8103862-X (Version None)
Quarter: 2012Q1

REPORT INFORMATION
  Report Type: 
  Country: None (occurrence: None)
  Receive Date: 20120201
  Receipt Date: 20120117
  Transmission Date: 20120608
  Serious: Yes (Hospitalization)
  Sender: FDA-Public Use
  Company Number: US-WATSON-2012-00987

PATIENT
  Age: 52 Year
  Sex: Male

DRUGS (1)
  1. ALLOPURINOL [Suspect]
     Indication: GOUT
     Route: 065

REACTIONS (6)
  - RENAL FAILURE ACUTE [None]
  - RASH MACULO-PAPULAR [None]
  - DRUG RASH WITH EOSINOPHILIA AND SYSTEMIC SYMPTOMS [None]
  - EOSINOPHILIA [None]
  - PYREXIA [None]
  - TRANSAMINASES INCREASED [None]
